FAERS Safety Report 23052579 (Version 1)
Quarter: 2023Q4

REPORT INFORMATION
  Report Type: Spontaneous
  Country: DE (occurrence: DE)
  Receive Date: 20231011
  Receipt Date: 20231011
  Transmission Date: 20240109
  Serious: Yes (Other)
  Sender: FDA-Public Use
  Company Number: DE-009507513-2310DEU002135

PATIENT
  Sex: Female

DRUGS (2)
  1. KEYTRUDA [Suspect]
     Active Substance: PEMBROLIZUMAB
     Indication: Breast cancer
  2. KEYTRUDA [Suspect]
     Active Substance: PEMBROLIZUMAB
     Indication: Cervix carcinoma

REACTIONS (1)
  - Acute hepatic failure [Unknown]
